FAERS Safety Report 14710067 (Version 1)
Quarter: 2018Q2

REPORT INFORMATION
  Report Type: Spontaneous
  Country: US (occurrence: US)
  Receive Date: 20180403
  Receipt Date: 20180403
  Transmission Date: 20180711
  Serious: Yes (Other)
  Sender: FDA-Public Use
  Company Number: US-TEVA-2018-US-876345

PATIENT
  Sex: Female

DRUGS (2)
  1. COPAXONE [Suspect]
     Active Substance: GLATIRAMER ACETATE
     Indication: MULTIPLE SCLEROSIS
     Dosage: FORM STRENGTH UNKNOWN
     Route: 058
     Dates: start: 2015
  2. COPAXONE [Suspect]
     Active Substance: GLATIRAMER ACETATE
     Route: 058
     Dates: start: 20160208

REACTIONS (2)
  - Breast cancer [Unknown]
  - Mastectomy [Unknown]

NARRATIVE: CASE EVENT DATE: 2015
